FAERS Safety Report 9063966 (Version 1)
Quarter: 2013Q1

REPORT INFORMATION
  Report Type: Report from Study
  Country: US (occurrence: US)
  Receive Date: 20130131
  Receipt Date: 20130131
  Transmission Date: 20140127
  Serious: No
  Sender: FDA-Public Use
  Company Number: US-ABBOTT-12P-163-1017771-00

PATIENT
  Age: 59 Year
  Sex: Female

DRUGS (10)
  1. HUMIRA [Suspect]
     Indication: CROHN^S DISEASE
     Dates: start: 20121117, end: 20121117
  2. HUMIRA [Suspect]
     Dates: start: 20121201
  3. FOSAMAX [Concomitant]
     Indication: OSTEOPOROSIS
     Dosage: WEEKLY
     Route: 048
  4. CELEXA [Concomitant]
     Indication: DEPRESSION
     Dosage: DAILY
     Route: 048
  5. B12 VITAMIN STAR [Concomitant]
     Indication: HYPOVITAMINOSIS
     Dosage: DAILY
     Route: 048
  6. B12 VITAMIN STAR [Concomitant]
     Indication: CROHN^S DISEASE
  7. CALCIUM WITH VITAMIN D [Concomitant]
     Indication: OSTEOPOROSIS
     Dosage: 2 TABLETS DAILY
     Route: 048
  8. MULTIVITAMINS [Concomitant]
     Indication: VITAMIN SUPPLEMENTATION
     Dosage: DAILY
     Route: 048
  9. QUESTRAN [Concomitant]
     Indication: CROHN^S DISEASE
     Dosage: POWDER, 1 TO 2 TIMES DAILY
  10. QUESTRAN [Concomitant]
     Indication: DIARRHOEA

REACTIONS (2)
  - Injection site pain [Recovered/Resolved]
  - Injection site pain [Recovered/Resolved]
